FAERS Safety Report 6700504-2 (Version None)
Quarter: 2010Q2

REPORT INFORMATION
  Report Type: 
  Country: None (occurrence: None)
  Receive Date: 20100428
  Receipt Date: 20100423
  Transmission Date: 20101027
  Serious: Yes (Hospitalization)
  Sender: FDA-Public Use
  Company Number: A0809591A

PATIENT
  Age: 41 Year
  Sex: Male

DRUGS (3)
  1. AVANDIA [Suspect]
     Dosage: 8MG PER DAY
     Route: 048
     Dates: start: 20010301, end: 20060701
  2. ZESTRIL [Concomitant]
  3. HUMIBID [Concomitant]

REACTIONS (1)
  - MYOCARDIAL INFARCTION [None]
